FAERS Safety Report 25731370 (Version 1)
Quarter: 2025Q3

REPORT INFORMATION
  Report Type: Spontaneous
  Country: CN (occurrence: CN)
  Receive Date: 20250827
  Receipt Date: 20250827
  Transmission Date: 20251021
  Serious: Yes (Hospitalization)
  Sender: ROCHE
  Company Number: CN-CHEPLA-2025009876

PATIENT
  Age: 79 Year
  Sex: Female
  Weight: 62 kg

DRUGS (7)
  1. TRASTUZUMAB [Suspect]
     Active Substance: TRASTUZUMAB
     Indication: Gastric cancer
     Route: 050
     Dates: start: 20240918
  2. TRASTUZUMAB [Suspect]
     Active Substance: TRASTUZUMAB
     Route: 050
     Dates: start: 20250624
  3. CAPECITABINE [Suspect]
     Active Substance: CAPECITABINE
     Indication: Gastric cancer
     Dosage: APPROVAL NO. GYZZ H20073024; BID
     Route: 048
     Dates: start: 20250714, end: 20250812
  4. PACLITAXEL [Suspect]
     Active Substance: PACLITAXEL
     Indication: Gastric cancer
     Route: 050
     Dates: start: 20240918
  5. PACLITAXEL [Suspect]
     Active Substance: PACLITAXEL
     Route: 050
     Dates: start: 20250625
  6. TEGAFUR [Suspect]
     Active Substance: TEGAFUR
     Indication: Gastric cancer
     Route: 050
     Dates: start: 20240918
  7. SINTILIMAB [Suspect]
     Active Substance: SINTILIMAB
     Indication: Gastric cancer
     Route: 050
     Dates: start: 20240918

REACTIONS (5)
  - Vomiting [Recovering/Resolving]
  - Diarrhoea [Recovering/Resolving]
  - Fatigue [Recovering/Resolving]
  - Decreased appetite [Recovering/Resolving]
  - Weight decreased [Recovering/Resolving]

NARRATIVE: CASE EVENT DATE: 20250802
